FAERS Safety Report 4649799-X (Version None)
Quarter: 2005Q2

REPORT INFORMATION
  Report Type: 
  Country: None (occurrence: None)
  Receive Date: 20050502
  Receipt Date: 20050425
  Transmission Date: 20051028
  Serious: Yes (Hospitalization)
  Sender: FDA-Public Use
  Company Number: PHHO2005RO06640

PATIENT
  Age: 47 Year
  Sex: Female
  Weight: 75 kg

DRUGS (2)
  1. ZOLEDRONATE VS RISEDRONATE [Suspect]
     Indication: OSTEOPOROSIS
     Dosage: UNK, UNK
     Dates: start: 20040824, end: 20050228
  2. PREDNISONE [Concomitant]
     Indication: VASCULITIS
     Dosage: 10 MG, QD
     Route: 048
     Dates: start: 20050213, end: 20050228

REACTIONS (11)
  - ABDOMINAL PAIN UPPER [None]
  - ANOREXIA [None]
  - ASTHENIA [None]
  - EROSIVE DUODENITIS [None]
  - FATIGUE [None]
  - GALLBLADDER CHOLESTEROLOSIS [None]
  - HEPATIC PAIN [None]
  - HEPATITIS CHOLESTATIC [None]
  - HIATUS HERNIA [None]
  - NAUSEA [None]
  - PROTEINURIA [None]
